FAERS Safety Report 4442395-9 (Version None)
Quarter: 2004Q3

REPORT INFORMATION
  Report Type: 
  Country: None (occurrence: None)
  Receive Date: 20040903
  Receipt Date: 20040802
  Transmission Date: 20050211
  Serious: Yes (Other)
  Sender: FDA-Public Use
  Company Number: 2004UW16328

PATIENT
  Age: 76 Year
  Sex: Male
  Weight: 77.1115 kg

DRUGS (12)
  1. CRESTOR [Suspect]
     Indication: BLOOD CHOLESTEROL INCREASED
     Dosage: 10 MG PO
     Route: 048
  2. SYNTHROID [Concomitant]
  3. PLAVIX [Concomitant]
  4. EXELON [Concomitant]
  5. NAMENDA [Concomitant]
  6. ALTACE [Concomitant]
  7. VITAMIN B-12 [Concomitant]
  8. VITAMIN E [Concomitant]
  9. VITAMIN C [Concomitant]
  10. NORVASC [Concomitant]
  11. NIASPAN [Concomitant]
  12. ZYPREXA [Concomitant]

REACTIONS (1)
  - DYSGEUSIA [None]
